FAERS Safety Report 15284457 (Version 1)
Quarter: 2018Q3

REPORT INFORMATION
  Report Type: Spontaneous
  Country: US (occurrence: US)
  Receive Date: 20180801
  Receipt Date: 20180801
  Transmission Date: 20181010
  Serious: No
  Sender: FDA-Public Use
  Company Number: None

PATIENT
  Age: 28 Year
  Sex: Female

DRUGS (1)
  1. TALTZ [Suspect]
     Active Substance: IXEKIZUMAB

REACTIONS (3)
  - Injection site erythema [None]
  - Injection site nodule [None]
  - Injection site warmth [None]

NARRATIVE: CASE EVENT DATE: 20180730
